FAERS Safety Report 5581133-3 (Version None)
Quarter: 2007Q4

REPORT INFORMATION
  Report Type: 
  Country: None (occurrence: None)
  Receive Date: 20071228
  Receipt Date: 20071217
  Transmission Date: 20080405
  Serious: Yes (Hospitalization)
  Sender: FDA-Public Use
  Company Number: 2007S1013469

PATIENT
  Age: 54 Year
  Sex: Male
  Weight: 82.1011 kg

DRUGS (14)
  1. FENTANYL TRANSDERMAL SYSTEM [Suspect]
     Indication: PAIN
     Dosage: EVERY 3 DAYS; TRANSDERMAL
     Route: 062
     Dates: start: 20060101, end: 20070101
  2. ANALGESICS [Suspect]
     Indication: PAIN
     Dosage: ORAL
     Route: 048
  3. FENTANYL TRANSDERMAL SYSTEM [Suspect]
     Indication: PAIN
     Dosage: 25 UG/HR; EVERY 3 DAYS; TRANSDERMAL ; 400 UG/HR; EVERY 3 DAYS; TRANSDERMAL ; 250 UG/HR, EVERY OTHER
     Route: 062
     Dates: start: 19990101
  4. FENTANYL TRANSDERMAL SYSTEM [Suspect]
     Indication: PAIN
     Dosage: 25 UG/HR; EVERY 3 DAYS; TRANSDERMAL ; 400 UG/HR; EVERY 3 DAYS; TRANSDERMAL ; 250 UG/HR, EVERY OTHER
     Route: 062
     Dates: start: 20071101
  5. FENTANYL TRANSDERMAL SYSTEM [Suspect]
     Indication: PAIN
     Dosage: TRANSDERMAL
     Route: 062
     Dates: start: 20060101
  6. PHENERGAN /00033001/ [Concomitant]
  7. ACETYLSALICYLIC ACID SRT [Concomitant]
  8. GLYCERYL TRINITRATE [Concomitant]
  9. TRAZODONE HCL [Concomitant]
  10. LEXAPRO [Concomitant]
  11. TRIFULOPERAZINE HYDROCHLORIDE [Concomitant]
  12. PANCRELIPASE [Concomitant]
  13. PREVACID [Concomitant]
  14. XANAX [Concomitant]

REACTIONS (8)
  - ASTHENIA [None]
  - DIZZINESS [None]
  - DRUG HYPERSENSITIVITY [None]
  - HYPERHIDROSIS [None]
  - INADEQUATE ANALGESIA [None]
  - PALPITATIONS [None]
  - PANCREATITIS [None]
  - WEIGHT DECREASED [None]
